FAERS Safety Report 24934787 (Version 2)
Quarter: 2025Q3

REPORT INFORMATION
  Report Type: Report from Study
  Country: CA (occurrence: CA)
  Receive Date: 20250206
  Receipt Date: 20250829
  Transmission Date: 20251020
  Serious: Yes (Hospitalization)
  Sender: ROCHE
  Company Number: CA-ROCHE-10000166311

PATIENT
  Sex: Male

DRUGS (1)
  1. OCREVUS [Suspect]
     Active Substance: OCRELIZUMAB
     Indication: Relapsing-remitting multiple sclerosis
     Dosage: 300 MG AT DAY 0 AND 14, THEN 600 MG EVERY 6 MONTHS
     Route: 042
     Dates: start: 20240802

REACTIONS (7)
  - Pyrexia [Unknown]
  - Chills [Unknown]
  - Febrile neutropenia [Unknown]
  - Hypoaesthesia [Unknown]
  - Tremor [Unknown]
  - Pain [Unknown]
  - Gingivitis [Unknown]
